FAERS Safety Report 4276965-8 (Version None)
Quarter: 2004Q1

REPORT INFORMATION
  Report Type: 
  Country: None (occurrence: None)
  Receive Date: 20040109
  Receipt Date: 20031230
  Transmission Date: 20041129
  Serious: Yes (Hospitalization)
  Sender: FDA-Public Use
  Company Number: 12452975

PATIENT
  Sex: Female

DRUGS (1)
  1. METHOTREXATE [Suspect]
     Indication: RHEUMATOID ARTHRITIS
     Dosage: 1 DOSAGE FORM, 1/1 WEEK IM
     Route: 030
     Dates: start: 19960101

REACTIONS (10)
  - BLOOD CREATININE ABNORMAL [None]
  - COCCIDIOIDOMYCOSIS [None]
  - EXANTHEM [None]
  - HAEMOGLOBIN ABNORMAL [None]
  - LYMPHADENOPATHY [None]
  - PNEUMONIA BACTERIAL [None]
  - PRURITUS [None]
  - RHEUMATOID ARTHRITIS [None]
  - SEROLOGY ABNORMAL [None]
  - WHITE BLOOD CELL COUNT ABNORMAL [None]
